FAERS Safety Report 21138289 (Version 3)
Quarter: 2022Q3

REPORT INFORMATION
  Report Type: Spontaneous
  Country: US (occurrence: US)
  Receive Date: 20220727
  Receipt Date: 20220901
  Transmission Date: 20221026
  Serious: No
  Sender: FDA-Public Use
  Company Number: US-GLAXOSMITHKLINE-US2022AMR110777

PATIENT
  Age: 62 Year
  Sex: Female

DRUGS (1)
  1. ZEJULA [Suspect]
     Active Substance: NIRAPARIB
     Indication: Ovarian cancer
     Dosage: 200 MG, QD
     Dates: start: 20220718

REACTIONS (3)
  - Middle insomnia [Unknown]
  - Blood creatinine increased [Not Recovered/Not Resolved]
  - Blood urea increased [Unknown]

NARRATIVE: CASE EVENT DATE: 20220701
